FAERS Safety Report 9199204 (Version 1)
Quarter: 2013Q1

REPORT INFORMATION
  Report Type: Spontaneous
  Country: US (occurrence: US)
  Receive Date: 20130329
  Receipt Date: 20130329
  Transmission Date: 20140127
  Serious: No
  Sender: FDA-Public Use
  Company Number: US-009507513-1303USA013203

PATIENT
  Age: 30 Year
  Sex: Female

DRUGS (2)
  1. NUVARING [Suspect]
     Indication: CONTRACEPTION
     Dosage: UNK
     Route: 067
     Dates: start: 20130321
  2. TRI-SPRINTEC [Concomitant]
     Dosage: UNK
     Dates: start: 20130317, end: 20130320

REACTIONS (2)
  - Discomfort [Unknown]
  - Nausea [Unknown]
